FAERS Safety Report 4636857-9 (Version None)
Quarter: 2005Q2

REPORT INFORMATION
  Report Type: 
  Country: None (occurrence: None)
  Receive Date: 20050415
  Receipt Date: 20050412
  Transmission Date: 20051028
  Serious: Yes (Disabling)
  Sender: FDA-Public Use
  Company Number: CA-MERCK-0504CAN00076

PATIENT
  Age: 84 Year
  Sex: Female

DRUGS (17)
  1. CHOLECALCIFEROL [Concomitant]
     Indication: OSTEOPOROSIS
     Route: 048
     Dates: start: 20041222
  2. FOSAMAX [Suspect]
     Indication: OSTEOPOROSIS POSTMENOPAUSAL
     Route: 048
     Dates: start: 20041222
  3. CALCIUM (UNSPECIFIED) [Concomitant]
     Indication: OSTEOPOROSIS
     Route: 065
     Dates: start: 20041222
  4. FOLIC ACID [Concomitant]
     Indication: VITAMIN SUPPLEMENTATION
     Route: 065
     Dates: start: 19970320
  5. CILAZAPRIL [Concomitant]
     Indication: HYPERTENSION
     Route: 065
     Dates: start: 19970521
  6. BISOPROLOL FUMARATE [Concomitant]
     Indication: HYPERTENSION
     Route: 065
     Dates: start: 20030117
  7. DIGOXIN [Concomitant]
     Indication: CARDIAC FAILURE CHRONIC
     Route: 065
     Dates: start: 19970425
  8. PRAVASTATIN SODIUM [Concomitant]
     Indication: HYPERLIPIDAEMIA
     Route: 065
     Dates: start: 19971126
  9. DOMPERIDONE [Concomitant]
     Indication: GASTROOESOPHAGEAL REFLUX DISEASE
     Route: 065
     Dates: start: 20030117
  10. VITAMIN E [Concomitant]
     Route: 065
     Dates: start: 19941211
  11. ASCORBIC ACID AND VITAMIN B COMPLEX [Concomitant]
     Indication: VITAMIN SUPPLEMENTATION
     Route: 065
     Dates: start: 20000101
  12. CHONDROITIN SULFATE SODIUM AND GLUCOSAMINE SULFATE [Concomitant]
     Indication: MEDICAL DIET
     Route: 065
     Dates: start: 20000101
  13. MAGNESIUM (UNSPECIFIED) [Concomitant]
     Indication: VITAMIN SUPPLEMENTATION
     Route: 065
     Dates: start: 20000101
  14. ISOSORBIDE DINITRATE [Concomitant]
     Indication: ANGINA PECTORIS
     Route: 065
     Dates: start: 20000101
  15. ISOSORBIDE DINITRATE [Concomitant]
     Route: 065
     Dates: start: 20000101
  16. ASPIRIN [Concomitant]
     Indication: PROPHYLAXIS
     Route: 065
     Dates: start: 20000216
  17. ECHINACEA [Concomitant]
     Indication: PHYTOTHERAPY
     Route: 065
     Dates: start: 20000210

REACTIONS (3)
  - ANAEMIA [None]
  - FALL [None]
  - MELAENA [None]
